FAERS Safety Report 4887211-6 (Version None)
Quarter: 2005Q4

REPORT INFORMATION
  Report Type: 
  Country: None (occurrence: None)
  Receive Date: 20051223
  Receipt Date: 20050726
  Transmission Date: 20060501
  Serious: Yes (Hospitalization)
  Sender: FDA-Public Use
  Company Number: US_980707535

PATIENT
  Age: 65 Year
  Sex: Male

DRUGS (6)
  1. HUMALOG [Suspect]
     Indication: DIABETES MELLITUS
     Dates: start: 19970101
  2. HUMULIN U [Suspect]
     Indication: DIABETES MELLITUS
     Dates: start: 19970101
  3. HUMULIN R [Suspect]
  4. LENTE ILETIN II (PORK) [Suspect]
  5. ILETIN I [Suspect]
     Dates: start: 19630101
  6. ILETIN [Suspect]

REACTIONS (3)
  - BLOOD GLUCOSE DECREASED [None]
  - BLOOD GLUCOSE INCREASED [None]
  - DIABETES MELLITUS INADEQUATE CONTROL [None]
